FAERS Safety Report 11102082 (Version 1)
Quarter: 2015Q2

REPORT INFORMATION
  Report Type: Spontaneous
  Country: JP (occurrence: JP)
  Receive Date: 20150511
  Receipt Date: 20150511
  Transmission Date: 20150821
  Serious: Yes (Other)
  Sender: FDA-Public Use
  Company Number: JP-CIPLA LTD.-2015JP03522

PATIENT

DRUGS (2)
  1. CISPLATIN. [Suspect]
     Active Substance: CISPLATIN
     Dosage: 4 CYCLES
  2. IRINOTECAN [Suspect]
     Active Substance: IRINOTECAN
     Dosage: 24 CYCLES

REACTIONS (1)
  - Toxicity to various agents [Unknown]
